FAERS Safety Report 26060344 (Version 1)
Quarter: 2025Q4

REPORT INFORMATION
  Report Type: Spontaneous
  Country: EU (occurrence: EU)
  Receive Date: 20251118
  Receipt Date: 20251118
  Transmission Date: 20260118
  Serious: Yes (Life-Threatening, Hospitalization, Other)
  Sender: TEVA
  Company Number: None

PATIENT
  Age: 32 Year
  Sex: Male

DRUGS (12)
  1. VENLAFAXINE [Suspect]
     Active Substance: VENLAFAXINE HYDROCHLORIDE
     Indication: Affective disorder
     Dosage: VENLAFAXINE HYDROCHLORIDE
     Route: 048
     Dates: end: 20020103
  2. DIGOXIN [Concomitant]
     Active Substance: DIGOXIN
     Indication: Product used for unknown indication
     Dosage: ^0.25 MG^ (FREQUENCY UNSPECIFIED)
     Route: 048
  3. FUROSEMIDE [Concomitant]
     Active Substance: FUROSEMIDE
     Indication: Product used for unknown indication
     Route: 065
  4. DIAZEPAM [Concomitant]
     Active Substance: DIAZEPAM
     Indication: Product used for unknown indication
     Route: 048
  5. IMOVANE [Concomitant]
     Active Substance: ZOPICLONE
     Indication: Product used for unknown indication
     Route: 065
  6. ZIPRASIDONE [Suspect]
     Active Substance: ZIPRASIDONE
     Indication: Affective disorder
     Dosage: DAILY DOSE: 120MILLIGRAM
     Route: 048
     Dates: start: 200107, end: 20020103
  7. ZIPRASIDONE [Suspect]
     Active Substance: ZIPRASIDONE
     Indication: Affective disorder
     Route: 048
     Dates: start: 200107, end: 20020103
  8. METOPROLOL [Concomitant]
     Active Substance: METOPROLOL
     Indication: Product used for unknown indication
     Dosage: SLOW RELEASE
     Route: 065
  9. RAMIPRIL [Concomitant]
     Active Substance: RAMIPRIL
     Indication: Product used for unknown indication
     Route: 048
  10. SPIRONOLACTONE [Concomitant]
     Active Substance: SPIRONOLACTONE
     Indication: Product used for unknown indication
     Route: 048
  11. OXAZEPAM [Concomitant]
     Active Substance: OXAZEPAM
     Indication: Product used for unknown indication
     Route: 048
  12. CARVEDILOL [Concomitant]
     Active Substance: CARVEDILOL
     Indication: Product used for unknown indication
     Route: 048

REACTIONS (31)
  - Cardiac failure [Unknown]
  - Decreased appetite [Unknown]
  - Sepsis [Unknown]
  - Cardiomyopathy [Not Recovered/Not Resolved]
  - Cardiogenic shock [Not Recovered/Not Resolved]
  - Cardiac failure [Not Recovered/Not Resolved]
  - Dehydration [Not Recovered/Not Resolved]
  - Psychotic disorder [Not Recovered/Not Resolved]
  - Syncope [Not Recovered/Not Resolved]
  - Bacterial infection [Not Recovered/Not Resolved]
  - Hypertension [Unknown]
  - Weight decreased [Unknown]
  - Viral infection [Not Recovered/Not Resolved]
  - Hypotension [Not Recovered/Not Resolved]
  - Dyspnoea [Unknown]
  - Liver function test abnormal [Recovering/Resolving]
  - Cough [Unknown]
  - Respiratory rate increased [Unknown]
  - Diarrhoea [Unknown]
  - Left ventricular dysfunction [Not Recovered/Not Resolved]
  - Blood sodium abnormal [Not Recovered/Not Resolved]
  - Vomiting [Unknown]
  - Gastric infection [Not Recovered/Not Resolved]
  - Nausea [Unknown]
  - Chest pain [Unknown]
  - Acute kidney injury [Unknown]
  - Urine output decreased [Not Recovered/Not Resolved]
  - Infection [Not Recovered/Not Resolved]
  - Blood creatinine increased [Recovered/Resolved]
  - Shock [Unknown]
  - Hepatic function abnormal [Unknown]

NARRATIVE: CASE EVENT DATE: 20010101
